FAERS Safety Report 24713955 (Version 1)
Quarter: 2024Q4

REPORT INFORMATION
  Report Type: Spontaneous
  Country: US (occurrence: US)
  Receive Date: 20241209
  Receipt Date: 20241209
  Transmission Date: 20250115
  Serious: No
  Sender: REGENERON
  Company Number: US-REGENERON PHARMACEUTICALS, INC.-2024-084403

PATIENT
  Age: 89 Year
  Sex: Female

DRUGS (2)
  1. EYLEA [Suspect]
     Active Substance: AFLIBERCEPT
     Indication: Neovascular age-related macular degeneration
     Dosage: UNK (FORMULATION: PFS GERRESHEIMER, STRENGTH: 2MG/0.05ML)
  2. EYLEA [Suspect]
     Active Substance: AFLIBERCEPT
     Indication: Dry age-related macular degeneration

REACTIONS (2)
  - Off label use [Unknown]
  - Intercepted product preparation error [Unknown]
